FAERS Safety Report 4688220-2 (Version None)
Quarter: 2005Q2

REPORT INFORMATION
  Report Type: 
  Country: None (occurrence: None)
  Receive Date: 20050610
  Receipt Date: 20050601
  Transmission Date: 20051028
  Serious: Yes (Hospitalization)
  Sender: FDA-Public Use
  Company Number: US-ABBOTT-05P-163-0302550-00

PATIENT
  Sex: Male

DRUGS (2)
  1. DILAUDID [Suspect]
     Indication: DRUG USE FOR UNKNOWN INDICATION
     Dosage: OVERDOSE
     Route: 050
  2. DILAUDID [Suspect]
     Route: 050

REACTIONS (3)
  - INTENTIONAL MISUSE [None]
  - OVERDOSE [None]
  - PAIN [None]
